FAERS Safety Report 7099225-9 (Version None)
Quarter: 2010Q4

REPORT INFORMATION
  Report Type: 
  Country: None (occurrence: None)
  Receive Date: 20101112
  Receipt Date: 20101103
  Transmission Date: 20110411
  Serious: Yes (Other)
  Sender: FDA-Public Use
  Company Number: US-JNJFOC-20101102911

PATIENT
  Sex: Female
  Weight: 69.85 kg

DRUGS (6)
  1. RISPERDAL [Suspect]
     Indication: BIPOLAR DISORDER
     Route: 048
  2. RISPERDAL [Suspect]
     Route: 048
  3. RISPERDAL [Suspect]
     Route: 048
  4. TOPAMAX [Suspect]
     Indication: BIPOLAR DISORDER
     Route: 048
  5. LAMICTAL [Suspect]
     Indication: BIPOLAR DISORDER
     Route: 048
  6. THYROID THERAPY [Concomitant]
     Indication: THYROID DISORDER
     Route: 048

REACTIONS (1)
  - MANIA [None]
